FAERS Safety Report 17817406 (Version 5)
Quarter: 2020Q3

REPORT INFORMATION
  Report Type: Report from Study
  Country: None (occurrence: US)
  Receive Date: 20200522
  Receipt Date: 20200820
  Transmission Date: 20201102
  Serious: Yes (Other)
  Sender: FDA-Public Use
  Company Number: US-ABBVIE-20K-163-3408605-00

PATIENT
  Sex: Female

DRUGS (1)
  1. ORILISSA [Suspect]
     Active Substance: ELAGOLIX SODIUM
     Indication: PRODUCT USED FOR UNKNOWN INDICATION
     Route: 048

REACTIONS (10)
  - Hypertension [Unknown]
  - Pain [Unknown]
  - Exostosis [Unknown]
  - Neck pain [Unknown]
  - Headache [Unknown]
  - Nerve injury [Unknown]
  - Concussion [Unknown]
  - Vomiting [Unknown]
  - Dysmenorrhoea [Unknown]
  - Loss of consciousness [Unknown]
